FAERS Safety Report 18594495 (Version 1)
Quarter: 2020Q4

REPORT INFORMATION
  Report Type: Spontaneous
  Country: US (occurrence: US)
  Receive Date: 20201208
  Receipt Date: 20201208
  Transmission Date: 20210114
  Serious: Yes (Hospitalization)
  Sender: FDA-Public Use
  Company Number: None

PATIENT
  Age: 76 Year
  Sex: Female
  Weight: 88.2 kg

DRUGS (13)
  1. ASPIRIN. [Concomitant]
     Active Substance: ASPIRIN
     Dates: start: 20201201, end: 20201205
  2. SUCRALFATE. [Concomitant]
     Active Substance: SUCRALFATE
     Dates: start: 20201201, end: 20201205
  3. DEXAMETHASONE. [Concomitant]
     Active Substance: DEXAMETHASONE
     Dates: start: 20201201, end: 20201205
  4. TRAMADOL. [Concomitant]
     Active Substance: TRAMADOL
     Dates: start: 20201201, end: 20201205
  5. FERROUS SULFATE. [Concomitant]
     Active Substance: FERROUS SULFATE
     Dates: start: 20201201, end: 20201205
  6. ZOFRAN [Concomitant]
     Active Substance: ONDANSETRON HYDROCHLORIDE
     Dates: start: 20201202, end: 20201205
  7. MEROPENEM. [Concomitant]
     Active Substance: MEROPENEM
     Dates: start: 20201203, end: 20201205
  8. VEKLURY [Suspect]
     Active Substance: REMDESIVIR
     Indication: COVID-19
     Dosage: ?          OTHER FREQUENCY:ONCE;?
     Route: 041
  9. BREO ELLIPTA [Concomitant]
     Active Substance: FLUTICASONE FUROATE\VILANTEROL TRIFENATATE
     Dates: start: 20201201, end: 20201205
  10. SPIRIVA [Concomitant]
     Active Substance: TIOTROPIUM BROMIDE MONOHYDRATE
     Dates: start: 20201201, end: 20201205
  11. DOXYCYCLINE. [Concomitant]
     Active Substance: DOXYCYCLINE
     Dates: start: 20201203, end: 20201205
  12. NOREPINEPHRINE. [Concomitant]
     Active Substance: NOREPINEPHRINE
     Dates: start: 20201203, end: 20201205
  13. ALBUTEROL. [Concomitant]
     Active Substance: ALBUTEROL
     Dates: start: 20201201, end: 20201205

REACTIONS (16)
  - Sepsis [None]
  - Aspartate aminotransferase increased [None]
  - White blood cell count increased [None]
  - Troponin increased [None]
  - Alanine aminotransferase increased [None]
  - Renal impairment [None]
  - Multiple organ dysfunction syndrome [None]
  - Hypotension [None]
  - Blood alkaline phosphatase increased [None]
  - Shock [None]
  - Therapy cessation [None]
  - Blood bilirubin increased [None]
  - Ammonia increased [None]
  - International normalised ratio decreased [None]
  - Mental impairment [None]
  - Hypoxia [None]

NARRATIVE: CASE EVENT DATE: 20201203
